FAERS Safety Report 9626658 (Version 2)
Quarter: 2013Q4

REPORT INFORMATION
  Report Type: Spontaneous
  Country: FR (occurrence: FR)
  Receive Date: 20131016
  Receipt Date: 20131024
  Transmission Date: 20140711
  Serious: Yes (Other)
  Sender: FDA-Public Use
  Company Number: FR-PFIZER INC-2013289983

PATIENT
  Age: 73 Year
  Sex: Female

DRUGS (6)
  1. AROMASINE [Suspect]
     Indication: BREAST CANCER
     Dosage: 25 MG, 1X/DAY
     Route: 048
  2. NOXAFIL [Interacting]
     Dosage: UNK
     Route: 048
     Dates: start: 201305
  3. NOXAFIL [Interacting]
     Dosage: 200 MG, 3X/DAY
     Route: 048
     Dates: start: 201308
  4. INEXIUM [Interacting]
     Dosage: 20 MG, 1X/DAY
     Route: 048
  5. TEMESTA [Interacting]
     Dosage: 1 DF, 1X/DAY
     Route: 048
  6. DIFFU K [Interacting]
     Dosage: 1 DF, 1X/DAY
     Route: 048

REACTIONS (3)
  - Metastases to central nervous system [Unknown]
  - Drug interaction [Not Recovered/Not Resolved]
  - Drug level decreased [Not Recovered/Not Resolved]
